FAERS Safety Report 6632263-6 (Version None)
Quarter: 2010Q1

REPORT INFORMATION
  Report Type: 
  Country: None (occurrence: None)
  Receive Date: 20100312
  Receipt Date: 20100303
  Transmission Date: 20100710
  Serious: Yes (Other)
  Sender: FDA-Public Use
  Company Number: US-AMGEN-QUU397383

PATIENT
  Sex: Female

DRUGS (1)
  1. ENBREL [Suspect]
     Indication: JUVENILE ARTHRITIS
     Dates: start: 20071101

REACTIONS (4)
  - EXPOSURE TO ALLERGEN [None]
  - EYE PAIN [None]
  - EYE SWELLING [None]
  - SWELLING FACE [None]
